FAERS Safety Report 16675510 (Version 2)
Quarter: 2019Q3

REPORT INFORMATION
  Report Type: Spontaneous
  Country: US (occurrence: US)
  Receive Date: 20190806
  Receipt Date: 20190917
  Transmission Date: 20191004
  Serious: Yes (Hospitalization, Other)
  Sender: FDA-Public Use
  Company Number: US-SHIRE-US201924530

PATIENT
  Age: 78 Year
  Sex: Female

DRUGS (1)
  1. TAKHZYRO [Suspect]
     Active Substance: LANADELUMAB-FLYO
     Indication: PRODUCT USED FOR UNKNOWN INDICATION
     Dosage: UNK
     Route: 065
     Dates: start: 20190726

REACTIONS (1)
  - Myocardial infarction [Recovering/Resolving]

NARRATIVE: CASE EVENT DATE: 20190726
